FAERS Safety Report 9022159 (Version 1)
Quarter: 2013Q1

REPORT INFORMATION
  Report Type: Spontaneous
  Country: US (occurrence: US)
  Receive Date: 20130118
  Receipt Date: 20130118
  Transmission Date: 20140127
  Serious: No
  Sender: FDA-Public Use
  Company Number: US-ASTRAZENECA-2013SE01860

PATIENT
  Sex: Female

DRUGS (2)
  1. CRESTOR [Suspect]
     Route: 048
     Dates: start: 2012
  2. CRESTOR [Suspect]
     Route: 048

REACTIONS (2)
  - Petechiae [Recovering/Resolving]
  - Contusion [Recovering/Resolving]
